FAERS Safety Report 5028638-1 (Version None)
Quarter: 2006Q2

REPORT INFORMATION
  Report Type: 
  Country: None (occurrence: None)
  Receive Date: 20060619
  Receipt Date: 20060608
  Transmission Date: 20061013
  Serious: Yes (Hospitalization)
  Sender: FDA-Public Use
  Company Number: PHHO2006FR09362

PATIENT
  Age: 21 Year
  Sex: Male
  Weight: 42 kg

DRUGS (2)
  1. EFFERALGAN [Concomitant]
     Indication: HEADACHE
     Dates: start: 20060604, end: 20060605
  2. ICL670A [Suspect]
     Indication: BLOOD IRON INCREASED
     Dosage: 875 MG, QD
     Route: 048
     Dates: start: 20060524, end: 20060606

REACTIONS (10)
  - ABDOMINAL PAIN [None]
  - ALANINE AMINOTRANSFERASE [None]
  - ASPARTATE AMINOTRANSFERASE INCREASED [None]
  - ASTHENIA [None]
  - DIZZINESS [None]
  - FACE OEDEMA [None]
  - HAEMOGLOBIN DECREASED [None]
  - HEADACHE [None]
  - NAUSEA [None]
  - STRABISMUS [None]
